FAERS Safety Report 4196111 (Version 1)
Quarter: 2020Q3

REPORT INFORMATION
  Report Type: Report from Study
  Country: AU (occurrence: AU)
  Receive Date: 20040825
  Receipt Date: 20040825
  Transmission Date: 20201105
  Serious: Yes (Hospitalization)
  Sender: FDA-Public Use
  Company Number: APCDSS2001001181

PATIENT
  Age: 45 Year
  Sex: Male
  Weight: 112.9 kg

DRUGS (2)
  1. TOPIRAMATE. [Suspect]
     Active Substance: TOPIRAMATE
     Indication: OBESITY
     Route: 065
     Dates: start: 20001215
  2. TOPIRAMATE. [Suspect]
     Active Substance: TOPIRAMATE
     Route: 065
     Dates: start: 20001215

REACTIONS (4)
  - Weight decreased [None]
  - Cholecystitis acute [None]
  - Lower respiratory tract infection [None]
  - Cholelithiasis [None]

NARRATIVE: CASE EVENT DATE: 20010820
